FAERS Safety Report 4452346-9 (Version None)
Quarter: 2004Q3

REPORT INFORMATION
  Report Type: 
  Country: None (occurrence: None)
  Receive Date: 20040915
  Receipt Date: 20040830
  Transmission Date: 20050211
  Serious: Yes (Other)
  Sender: FDA-Public Use
  Company Number: DSA_24884_2004

PATIENT
  Age: 71 Year
  Sex: Female

DRUGS (1)
  1. TEVETEN [Suspect]
     Indication: HYPERTENSION
     Dosage: 600 MG Q DAY PO
     Route: 048

REACTIONS (3)
  - DIZZINESS [None]
  - NAUSEA [None]
  - TACHYCARDIA [None]
